FAERS Safety Report 7234266-X (Version None)
Quarter: 2010Q4

REPORT INFORMATION
  Report Type: 
  Country: None (occurrence: None)
  Receive Date: 20101130
  Receipt Date: 20090804
  Transmission Date: 20110411
  Serious: Yes (Hospitalization)
  Sender: FDA-Public Use
  Company Number: 2008-181666-NL

PATIENT
  Age: 36 Year
  Sex: Female
  Weight: 101.6 kg

DRUGS (4)
  1. NUVARING [Suspect]
     Indication: PRODUCT USED FOR UNKNOWN INDICATION
     Dates: start: 20051201, end: 20071115
  2. PENICILLIN [Concomitant]
  3. CALTRATE [Concomitant]
  4. AMOXIL [Concomitant]

REACTIONS (3)
  - DEEP VEIN THROMBOSIS [None]
  - IRRITABLE BOWEL SYNDROME [None]
  - TOOTHACHE [None]
